FAERS Safety Report 14086467 (Version 1)
Quarter: 2017Q4

REPORT INFORMATION
  Report Type: Spontaneous
  Country: JP (occurrence: JP)
  Receive Date: 20171013
  Receipt Date: 20171013
  Transmission Date: 20180321
  Serious: Yes (Death, Other)
  Sender: FDA-Public Use
  Company Number: JP-JNJFOC-20171012621

PATIENT

DRUGS (2)
  1. DOXIL [Suspect]
     Active Substance: DOXORUBICIN HYDROCHLORIDE
     Indication: PRODUCT USED FOR UNKNOWN INDICATION
     Route: 065
  2. CAELYX [Suspect]
     Active Substance: DOXORUBICIN HYDROCHLORIDE
     Indication: PRODUCT USED FOR UNKNOWN INDICATION
     Route: 065

REACTIONS (37)
  - Neutropenia [Unknown]
  - Dyspnoea [Unknown]
  - Pleural effusion [Unknown]
  - Cardiotoxicity [Unknown]
  - Thrombocytopenia [Unknown]
  - Asthenia [Unknown]
  - Interstitial lung disease [Unknown]
  - Alopecia [Unknown]
  - Diarrhoea [Unknown]
  - Pain [Unknown]
  - Abdominal pain [Unknown]
  - Anxiety [Unknown]
  - Death [Fatal]
  - Pneumonia [Unknown]
  - Osteonecrosis [Unknown]
  - Bone pain [Unknown]
  - Cardiomyopathy [Unknown]
  - Cytopenia [Unknown]
  - Neuropathy peripheral [Unknown]
  - Pulmonary embolism [Unknown]
  - Fatigue [Unknown]
  - Infection [Unknown]
  - Febrile neutropenia [Unknown]
  - Sepsis [Unknown]
  - Pancytopenia [Unknown]
  - Nausea [Unknown]
  - Anaemia [Unknown]
  - Arthralgia [Unknown]
  - Mucosal inflammation [Unknown]
  - Palmar-plantar erythrodysaesthesia syndrome [Unknown]
  - Leukopenia [Unknown]
  - Erythropenia [Unknown]
  - Pyrexia [Unknown]
  - Vomiting [Unknown]
  - Back pain [Unknown]
  - Dehydration [Unknown]
  - Bone disorder [Unknown]
